FAERS Safety Report 12931277 (Version 1)
Quarter: 2016Q4

REPORT INFORMATION
  Report Type: Spontaneous
  Country: US (occurrence: US)
  Receive Date: 20161110
  Receipt Date: 20161110
  Transmission Date: 20170207
  Serious: No
  Sender: FDA-Public Use
  Company Number: US-JAZZ-2016-US-018043

PATIENT
  Sex: Female

DRUGS (29)
  1. SEROQUEL [Concomitant]
     Active Substance: QUETIAPINE FUMARATE
  2. XANAX [Concomitant]
     Active Substance: ALPRAZOLAM
  3. XYREM [Suspect]
     Active Substance: SODIUM OXYBATE
     Indication: SLEEP DISORDER
     Dosage: 2.25 G, BID
     Route: 048
     Dates: start: 201311, end: 201312
  4. CYTOMEL [Concomitant]
     Active Substance: LIOTHYRONINE SODIUM
  5. MIRAPEX [Concomitant]
     Active Substance: PRAMIPEXOLE DIHYDROCHLORIDE
  6. ZINC GLUCONATE [Concomitant]
     Active Substance: ZINC GLUCONATE
  7. NEXIUM [Concomitant]
     Active Substance: ESOMEPRAZOLE MAGNESIUM
  8. DEPAKOTE [Concomitant]
     Active Substance: DIVALPROEX SODIUM
  9. HORIZANT [Concomitant]
     Active Substance: GABAPENTIN ENACARBIL
  10. NEURONTIN [Concomitant]
     Active Substance: GABAPENTIN
  11. TYLENOL WITH CODEINE [Concomitant]
     Active Substance: ACETAMINOPHEN\CODEINE PHOSPHATE
  12. WELLBUTRIN [Concomitant]
     Active Substance: BUPROPION HYDROCHLORIDE
  13. TEMAZEPAM. [Concomitant]
     Active Substance: TEMAZEPAM
  14. REQUIP [Concomitant]
     Active Substance: ROPINIROLE HYDROCHLORIDE
  15. VITAMIN C [Concomitant]
     Active Substance: ASCORBIC ACID
  16. CELEXA [Concomitant]
     Active Substance: CITALOPRAM HYDROBROMIDE
  17. SYNTHROID [Concomitant]
     Active Substance: LEVOTHYROXINE SODIUM
  18. XYREM [Suspect]
     Active Substance: SODIUM OXYBATE
     Dosage: 3.75 G, BID
     Route: 048
     Dates: start: 201312, end: 201401
  19. GEODON [Concomitant]
     Active Substance: ZIPRASIDONE HYDROCHLORIDE\ZIPRASIDONE MESYLATE
  20. NEUPRO [Concomitant]
     Active Substance: ROTIGOTINE
  21. PRILOSEC [Concomitant]
     Active Substance: OMEPRAZOLE MAGNESIUM
  22. ADVIL [Concomitant]
     Active Substance: IBUPROFEN
  23. XYREM [Suspect]
     Active Substance: SODIUM OXYBATE
     Dosage: 4.5 G, BID
     Route: 048
     Dates: start: 201401
  24. PROVIGIL [Concomitant]
     Active Substance: MODAFINIL
  25. PROZAC [Concomitant]
     Active Substance: FLUOXETINE HYDROCHLORIDE
  26. EFFEXOR [Concomitant]
     Active Substance: VENLAFAXINE HYDROCHLORIDE
  27. HAIR, SKIN + NAILS [Concomitant]
     Active Substance: MINERALS\VITAMINS
  28. OXYCODONE HYDROCHLORIDE. [Concomitant]
     Active Substance: OXYCODONE HYDROCHLORIDE
  29. MULTIVITAMIN [Concomitant]
     Active Substance: VITAMINS

REACTIONS (1)
  - Tooth disorder [Not Recovered/Not Resolved]
